FAERS Safety Report 23862060 (Version 1)
Quarter: 2024Q2

REPORT INFORMATION
  Report Type: Spontaneous
  Country: US (occurrence: None)
  Receive Date: 20240515
  Receipt Date: 20240515
  Transmission Date: 20240715
  Serious: Yes (Hospitalization)
  Sender: FDA-Public Use
  Company Number: None

PATIENT
  Sex: Male

DRUGS (11)
  1. ENBREL [Suspect]
     Active Substance: BENZYL ALCOHOL\ETANERCEPT
     Indication: Psoriatic arthropathy
     Dosage: OTHER QUANTITY : 1 ML (50 MG);?FREQUENCY : WEEKLY;?
     Route: 058
     Dates: start: 20211020
  2. ENBREL [Suspect]
     Active Substance: BENZYL ALCOHOL\ETANERCEPT
     Indication: Polyarthritis
  3. ALPHAGAN P [Concomitant]
     Active Substance: BRIMONIDINE TARTRATE
  4. ASPIRIN [Concomitant]
     Active Substance: ASPIRIN
  5. ATORVASTATIN [Concomitant]
  6. BD SHARPS [Concomitant]
  7. BISOPRL/HCTZ [Concomitant]
  8. CALCIPOTRIEN [Concomitant]
  9. ENBREL [Concomitant]
  10. FOLIC ACID [Concomitant]
     Active Substance: FOLIC ACID
  11. ISOSORB MONO [Concomitant]

REACTIONS (4)
  - Transient ischaemic attack [None]
  - Arthritis [None]
  - Loss of personal independence in daily activities [None]
  - Gait inability [None]
